FAERS Safety Report 15900433 (Version 1)
Quarter: 2019Q1

REPORT INFORMATION
  Report Type: Spontaneous
  Country: US (occurrence: US)
  Receive Date: 20190131
  Receipt Date: 20190131
  Transmission Date: 20190417
  Serious: No
  Sender: FDA-Public Use
  Company Number: None

PATIENT
  Age: 33 Year
  Sex: Female

DRUGS (1)
  1. CLONAZEPAM. [Suspect]
     Active Substance: CLONAZEPAM
     Indication: ANXIETY
     Dosage: ?          QUANTITY:1 TABLET(S);OTHER FREQUENCY:ONCE;?
     Route: 048
     Dates: start: 20190119, end: 20190119

REACTIONS (2)
  - Rash [None]
  - Burning sensation [None]

NARRATIVE: CASE EVENT DATE: 20190119
